FAERS Safety Report 25389423 (Version 1)
Quarter: 2025Q2

REPORT INFORMATION
  Report Type: Spontaneous
  Country: CN (occurrence: CN)
  Receive Date: 20250603
  Receipt Date: 20250603
  Transmission Date: 20250717
  Serious: Yes (Other)
  Sender: AMGEN
  Company Number: CN-AMGEN-CHNSP2025106154

PATIENT
  Age: 48 Year
  Sex: Female

DRUGS (12)
  1. ETANERCEPT [Suspect]
     Active Substance: ETANERCEPT
     Indication: Still^s disease
     Route: 065
  2. ETANERCEPT [Suspect]
     Active Substance: ETANERCEPT
     Indication: Off label use
  3. ADALIMUMAB [Concomitant]
     Active Substance: ADALIMUMAB
  4. TOCILIZUMAB [Concomitant]
     Active Substance: TOCILIZUMAB
  5. INFLIXIMAB [Concomitant]
     Active Substance: INFLIXIMAB
  6. INFLIXIMAB [Concomitant]
     Active Substance: INFLIXIMAB
     Dosage: 300 MILLIGRAM, Q2MO
  7. METHYLPREDNISOLONE [Concomitant]
     Active Substance: METHYLPREDNISOLONE
     Dosage: 40 MILLIGRAM, QD
  8. PREDNISONE ACETATE [Concomitant]
     Active Substance: PREDNISONE ACETATE
     Dosage: 60 MILLIGRAM, QD
  9. PREDNISONE ACETATE [Concomitant]
     Active Substance: PREDNISONE ACETATE
     Dosage: 35 MILLIGRAM, QD
     Route: 048
  10. BARICITINIB [Concomitant]
     Active Substance: BARICITINIB
     Dosage: 2 MILLIGRAM, BID
  11. BARICITINIB [Concomitant]
     Active Substance: BARICITINIB
     Dosage: 2 MILLIGRAM, QD
  12. METHOTREXATE [Concomitant]
     Active Substance: METHOTREXATE
     Dosage: 10 MILLIGRAM, QWK

REACTIONS (4)
  - Still^s disease [Recovering/Resolving]
  - Synovitis [Unknown]
  - Off label use [Unknown]
  - Drug ineffective for unapproved indication [Unknown]
